FAERS Safety Report 21258172 (Version 1)
Quarter: 2022Q3

REPORT INFORMATION
  Report Type: Spontaneous
  Country: SK (occurrence: SK)
  Receive Date: 20220826
  Receipt Date: 20220826
  Transmission Date: 20221027
  Serious: Yes (Hospitalization, Other)
  Sender: FDA-Public Use
  Company Number: None

PATIENT
  Age: 88 Year
  Sex: Male

DRUGS (2)
  1. TYGACIL [Suspect]
     Active Substance: TIGECYCLINE
     Indication: Bacterial colitis
     Dosage: 50 MG, EVERY 12 HOURS
     Dates: start: 20220726, end: 20220805
  2. TYGACIL [Suspect]
     Active Substance: TIGECYCLINE
     Indication: Urinary tract infection

REACTIONS (3)
  - Hypofibrinogenaemia [Recovering/Resolving]
  - International normalised ratio increased [Recovering/Resolving]
  - Hypocoagulable state [Recovering/Resolving]

NARRATIVE: CASE EVENT DATE: 20220801
